FAERS Safety Report 20574378 (Version 6)
Quarter: 2022Q3

REPORT INFORMATION
  Report Type: Report from Study
  Country: US (occurrence: US)
  Receive Date: 20220309
  Receipt Date: 20220708
  Transmission Date: 20221027
  Serious: No
  Sender: FDA-Public Use
  Company Number: US-NOVARTISPH-NVSC2022US052086

PATIENT
  Sex: Female

DRUGS (2)
  1. COSENTYX [Suspect]
     Active Substance: SECUKINUMAB
     Indication: Psoriasis
     Dosage: 300 MG, QMO
     Route: 058
  2. COSENTYX [Suspect]
     Active Substance: SECUKINUMAB
     Indication: Psoriatic arthropathy
     Dosage: 300 MG, QMO
     Route: 058

REACTIONS (12)
  - Salivary gland enlargement [Unknown]
  - Condition aggravated [Unknown]
  - Abdominal pain upper [Unknown]
  - Injection site pain [Unknown]
  - Arthralgia [Unknown]
  - Lymphadenitis [Recovering/Resolving]
  - Thyroiditis [Recovering/Resolving]
  - Noninfective sialoadenitis [Unknown]
  - Pustular psoriasis [Unknown]
  - Psoriasis [Unknown]
  - Unevaluable device issue [Unknown]
  - Drug ineffective [Unknown]
